FAERS Safety Report 5612504-4 (Version None)
Quarter: 2008Q1

REPORT INFORMATION
  Report Type: 
  Country: None (occurrence: None)
  Receive Date: 20080201
  Receipt Date: 20080201
  Transmission Date: 20080703
  Serious: Yes (Hospitalization)
  Sender: FDA-Public Use
  Company Number: None

PATIENT
  Age: 30 Year
  Sex: Female
  Weight: 50 kg

DRUGS (1)
  1. NIMUSULIDE 100 MG DRL [Suspect]
     Indication: ARTHRALGIA
     Dosage: 100 MG BD PO
     Route: 048

REACTIONS (1)
  - RASH GENERALISED [None]
